FAERS Safety Report 17106532 (Version 2)
Quarter: 2021Q1

REPORT INFORMATION
  Report Type: Spontaneous
  Country: US (occurrence: US)
  Receive Date: 20191203
  Receipt Date: 20210226
  Transmission Date: 20210419
  Serious: Yes (Death, Hospitalization, Other)
  Sender: FDA-Public Use
  Company Number: US-ASTRAZENECA-2019SF73445

PATIENT
  Age: 22666 Day
  Sex: Female
  Weight: 64.4 kg

DRUGS (64)
  1. PRILOSEC [Suspect]
     Active Substance: OMEPRAZOLE MAGNESIUM
     Indication: GASTROOESOPHAGEAL REFLUX DISEASE
     Route: 048
     Dates: start: 199301, end: 201803
  2. LIPITOR [Concomitant]
     Active Substance: ATORVASTATIN CALCIUM
     Indication: BLOOD CHOLESTEROL INCREASED
     Dates: start: 20090114, end: 20090328
  3. LEVAQUIN [Concomitant]
     Active Substance: LEVOFLOXACIN
     Indication: INFECTION
     Dates: start: 20110517, end: 20130914
  4. MINIPRESS [Concomitant]
     Active Substance: PRAZOSIN HYDROCHLORIDE
  5. CYMBALTA [Concomitant]
     Active Substance: DULOXETINE HYDROCHLORIDE
  6. ATENOLOL. [Concomitant]
     Active Substance: ATENOLOL
  7. LORATADINE. [Concomitant]
     Active Substance: LORATADINE
  8. CLOPIDOGREL [Concomitant]
     Active Substance: CLOPIDOGREL BISULFATE
     Indication: CEREBROVASCULAR ACCIDENT
     Dates: start: 20120706, end: 20180312
  9. ZANTAC [Concomitant]
     Active Substance: RANITIDINE HYDROCHLORIDE
     Dates: start: 20090226, end: 20180312
  10. VITAMIN D3 [Concomitant]
     Active Substance: CHOLECALCIFEROL
  11. XARELTO [Concomitant]
     Active Substance: RIVAROXABAN
  12. CYCLOBENZAPRINE. [Concomitant]
     Active Substance: CYCLOBENZAPRINE
  13. ZOLOFT [Concomitant]
     Active Substance: SERTRALINE HYDROCHLORIDE
  14. BUPROPION. [Concomitant]
     Active Substance: BUPROPION
  15. NEXIUM [Suspect]
     Active Substance: ESOMEPRAZOLE MAGNESIUM
     Indication: GASTROOESOPHAGEAL REFLUX DISEASE
     Route: 048
     Dates: start: 199301, end: 201803
  16. NEXIUM [Suspect]
     Active Substance: ESOMEPRAZOLE MAGNESIUM
     Indication: GASTROOESOPHAGEAL REFLUX DISEASE
     Route: 048
     Dates: start: 200906, end: 2013
  17. PLAVIX [Concomitant]
     Active Substance: CLOPIDOGREL BISULFATE
     Indication: CARDIAC DISORDER
     Dates: start: 20090429, end: 20120312
  18. IBUPROFEN. [Concomitant]
     Active Substance: IBUPROFEN
     Indication: PAIN
     Dates: start: 20090406, end: 20140908
  19. NORCO [Concomitant]
     Active Substance: ACETAMINOPHEN\HYDROCODONE BITARTRATE
  20. COREG [Concomitant]
     Active Substance: CARVEDILOL
  21. PROPACET [Concomitant]
     Active Substance: ACETAMINOPHEN\PROPOXYPHENE NAPSYLATE
  22. NICODERM CQ [Concomitant]
     Active Substance: NICOTINE
  23. KLOR?CON [Concomitant]
     Active Substance: POTASSIUM CHLORIDE
  24. PREVACID [Suspect]
     Active Substance: LANSOPRAZOLE
     Route: 065
     Dates: start: 199301, end: 201803
  25. FUROSEMIDE. [Concomitant]
     Active Substance: FUROSEMIDE
     Indication: OEDEMA
     Dates: start: 20090126, end: 20180312
  26. XANAX [Concomitant]
     Active Substance: ALPRAZOLAM
  27. AZITHROMYCIN ANHYDROUS. [Concomitant]
     Active Substance: AZITHROMYCIN ANHYDROUS
  28. RISPERIDONE. [Concomitant]
     Active Substance: RISPERIDONE
  29. PHENAZOPYRIDINE. [Concomitant]
     Active Substance: PHENAZOPYRIDINE
  30. ERYTHROMYCIN. [Concomitant]
     Active Substance: ERYTHROMYCIN
  31. SPIRIVA [Concomitant]
     Active Substance: TIOTROPIUM BROMIDE MONOHYDRATE
  32. BENZONATATE. [Concomitant]
     Active Substance: BENZONATATE
  33. METOLAZONE. [Concomitant]
     Active Substance: METOLAZONE
  34. PRILOSEC [Suspect]
     Active Substance: OMEPRAZOLE MAGNESIUM
     Indication: GASTROOESOPHAGEAL REFLUX DISEASE
     Dosage: GENERIC
     Route: 065
  35. PROTONIX [Suspect]
     Active Substance: PANTOPRAZOLE SODIUM
     Indication: GASTROOESOPHAGEAL REFLUX DISEASE
     Route: 065
     Dates: start: 200412, end: 2013
  36. LISINOPRIL. [Concomitant]
     Active Substance: LISINOPRIL
     Indication: HYPERTENSION
     Dates: start: 20100903, end: 20180228
  37. NITROSTAT [Concomitant]
     Active Substance: NITROGLYCERIN
  38. QUETIAPINE. [Concomitant]
     Active Substance: QUETIAPINE
  39. AUGMENTIN [Concomitant]
     Active Substance: AMOXICILLIN\CLAVULANATE POTASSIUM
  40. INDOMETHACIN. [Concomitant]
     Active Substance: INDOMETHACIN
  41. PRILOSEC [Suspect]
     Active Substance: OMEPRAZOLE MAGNESIUM
     Indication: GASTROOESOPHAGEAL REFLUX DISEASE
     Route: 048
     Dates: start: 200702, end: 2013
  42. DEXILANT [Suspect]
     Active Substance: DEXLANSOPRAZOLE
     Route: 065
  43. CRESTOR [Concomitant]
     Active Substance: ROSUVASTATIN CALCIUM
     Indication: BLOOD CHOLESTEROL INCREASED
     Dates: start: 20100930, end: 20160414
  44. IMDUR [Concomitant]
     Active Substance: ISOSORBIDE MONONITRATE
  45. APRESOLINE HYDROCHLORIDE [Concomitant]
     Active Substance: HYDRALAZINE HYDROCHLORIDE
  46. PROAIR HFA [Concomitant]
     Active Substance: ALBUTEROL SULFATE
  47. PREDNISONE. [Concomitant]
     Active Substance: PREDNISONE
  48. SURMONTIL [Concomitant]
     Active Substance: TRIMIPRAMINE MALEATE
  49. PROTONIX [Suspect]
     Active Substance: PANTOPRAZOLE SODIUM
     Indication: GASTROOESOPHAGEAL REFLUX DISEASE
     Route: 065
     Dates: start: 199301, end: 201803
  50. VITAMIN B12 [Concomitant]
     Active Substance: CYANOCOBALAMIN
  51. ALDACTONE [Concomitant]
     Active Substance: SPIRONOLACTONE
  52. VISTARIL [Concomitant]
     Active Substance: HYDROXYZINE PAMOATE
  53. CELEXA [Concomitant]
     Active Substance: CITALOPRAM HYDROBROMIDE
  54. ENALAPRIL [Concomitant]
     Active Substance: ENALAPRIL
  55. DIAZEPAM. [Concomitant]
     Active Substance: DIAZEPAM
  56. LORAZEPAM. [Concomitant]
     Active Substance: LORAZEPAM
  57. SUCRALFATE. [Concomitant]
     Active Substance: SUCRALFATE
  58. NAPROXEN. [Concomitant]
     Active Substance: NAPROXEN
  59. LUNESTA [Concomitant]
     Active Substance: ESZOPICLONE
  60. TUSSIONEX PENNKINETIC [Concomitant]
     Active Substance: CHLORPHENIRAMINE\HYDROCODONE
  61. CHANTIX [Concomitant]
     Active Substance: VARENICLINE TARTRATE
  62. CEPHALEXIN. [Concomitant]
     Active Substance: CEPHALEXIN
  63. TRIAMCINOLON [Concomitant]
  64. TORSEMIDE. [Concomitant]
     Active Substance: TORSEMIDE

REACTIONS (9)
  - Acute kidney injury [Unknown]
  - Renal failure [Fatal]
  - Hypertension [Fatal]
  - Hyperkalaemia [Fatal]
  - Hyperparathyroidism secondary [Unknown]
  - End stage renal disease [Unknown]
  - Cardiac arrest [Fatal]
  - Chronic kidney disease [Unknown]
  - Nephrogenic anaemia [Unknown]

NARRATIVE: CASE EVENT DATE: 20100803
